FAERS Safety Report 6596409-0 (Version None)
Quarter: 2010Q1

REPORT INFORMATION
  Report Type: 
  Country: None (occurrence: None)
  Receive Date: 20100222
  Receipt Date: 20100222
  Transmission Date: 20100710
  Serious: Yes (Hospitalization)
  Sender: FDA-Public Use
  Company Number: None

PATIENT
  Sex: Male
  Weight: 79.8 kg

DRUGS (2)
  1. CISPLATIN [Suspect]
     Dosage: 50 MG
     Dates: end: 20100215
  2. TAXOL [Suspect]
     Dosage: 100 MG
     Dates: end: 20100215

REACTIONS (3)
  - CHILLS [None]
  - FATIGUE [None]
  - PYREXIA [None]
